FAERS Safety Report 22528198 (Version 1)
Quarter: 2023Q2

REPORT INFORMATION
  Report Type: Report from Study
  Country: US (occurrence: US)
  Receive Date: 20230607
  Receipt Date: 20230607
  Transmission Date: 20230721
  Serious: Yes (Hospitalization, Other)
  Sender: FDA-Public Use
  Company Number: US-ABBVIE-5277838

PATIENT
  Age: 72 Year
  Sex: Male
  Weight: 67.585 kg

DRUGS (5)
  1. CREON [Suspect]
     Active Substance: PANCRELIPASE AMYLASE\PANCRELIPASE LIPASE\PANCRELIPASE PROTEASE
     Indication: Pancreatic carcinoma
     Dosage: TIME INTERVAL: 0.33333333 DAYS: 36000 UNIT ?2 CAPS WITH MEALS; 1 CAP WITH SNACKS
     Route: 048
     Dates: start: 202210, end: 20230530
  2. CREON [Suspect]
     Active Substance: PANCRELIPASE AMYLASE\PANCRELIPASE LIPASE\PANCRELIPASE PROTEASE
     Indication: Pancreatic carcinoma
     Dosage: TIME INTERVAL: 0.11111111 DAYS: 12000 UNIT?6 CAPS WITH MEALS; 3 CAPS THE SNACKS
     Route: 048
     Dates: start: 20230515
  3. ASPIRIN [Concomitant]
     Active Substance: ASPIRIN
     Indication: Anticoagulant therapy
     Dosage: 81MG
  4. LISINOPRIL [Concomitant]
     Active Substance: LISINOPRIL
     Indication: Blood pressure management
  5. PROTONIX [Concomitant]
     Active Substance: PANTOPRAZOLE SODIUM
     Indication: Pancreaticoduodenectomy

REACTIONS (7)
  - Cerebrovascular accident [Recovered/Resolved]
  - Pancreatic carcinoma metastatic [Not Recovered/Not Resolved]
  - Product use complaint [Recovered/Resolved]
  - Pancreaticoduodenectomy [Recovered/Resolved]
  - Choking [Recovered/Resolved]
  - Carotid artery occlusion [Unknown]
  - Vomiting [Recovered/Resolved]

NARRATIVE: CASE EVENT DATE: 20230223
